FAERS Safety Report 24299038 (Version 1)
Quarter: 2024Q3

REPORT INFORMATION
  Report Type: Report from Study
  Country: CN (occurrence: CN)
  Receive Date: 20240909
  Receipt Date: 20240909
  Transmission Date: 20241016
  Serious: Yes (Other)
  Sender: NOVARTIS
  Company Number: CN-002147023-NVSC2024CN179369

PATIENT
  Sex: Female

DRUGS (1)
  1. KISQALI [Suspect]
     Active Substance: RIBOCICLIB
     Indication: Breast cancer
     Dosage: 400 MG, QD
     Route: 048
     Dates: start: 20240815

REACTIONS (5)
  - Haematochezia [Unknown]
  - Alopecia [Not Recovered/Not Resolved]
  - Blister [Recovering/Resolving]
  - Skin discolouration [Unknown]
  - Off label use [Unknown]
